FAERS Safety Report 8458326-0 (Version None)
Quarter: 2012Q2

REPORT INFORMATION
  Report Type: 
  Country: None (occurrence: None)
  Receive Date: 20120615
  Receipt Date: 20120605
  Transmission Date: 20120825
  Serious: Yes (Hospitalization)
  Sender: FDA-Public Use
  Company Number: 2012SP030352

PATIENT
  Age: 91 Year
  Sex: Female

DRUGS (6)
  1. HYDROCHLOROTHIAZIDE [Concomitant]
  2. URO-VAXOM (ESCHERICHIA COLI LYSATE SICCUM) [Concomitant]
  3. RAMIPRIL [Concomitant]
  4. VIGANTOLETTEN 1000 (COLCALCIFEROL) [Concomitant]
  5. ALENDRONIC ACID (ALENDRONIC ACID) [Concomitant]
  6. KEIMAX (CEFTIBUTEN /01166201/) [Suspect]
     Indication: URINARY TRACT INFECTION
     Dosage: PO
     Route: 048
     Dates: start: 20111025, end: 20111030

REACTIONS (3)
  - CONFUSIONAL STATE [None]
  - DYSARTHRIA [None]
  - DISTURBANCE IN ATTENTION [None]
